FAERS Safety Report 8968185 (Version 1)
Quarter: 2012Q4

REPORT INFORMATION
  Report Type: 
  Country: US (occurrence: US)
  Receive Date: 20121217
  Receipt Date: 20121217
  Transmission Date: 20130627
  Serious: No
  Sender: FDA-Public Use
  Company Number: US-TEVA-375736USA

PATIENT
  Sex: Female

DRUGS (3)
  1. QVAR [Suspect]
     Indication: ASTHMA
     Dosage: 80 Microgram Daily;
     Route: 055
     Dates: start: 2010, end: 201210
  2. SINGULAIR [Concomitant]
     Indication: ASTHMA
     Dosage: 10 Milligram Daily;
     Route: 048
  3. LOSARTAN POTASSIUM [Concomitant]
     Indication: HYPERTENSION
     Dosage: 100 Milligram Daily;
     Route: 048

REACTIONS (6)
  - Nasal discomfort [Recovering/Resolving]
  - Oral pruritus [Recovering/Resolving]
  - Eye pruritus [Recovering/Resolving]
  - Musculoskeletal pain [Recovering/Resolving]
  - Abdominal pain [Recovering/Resolving]
  - Nausea [Recovering/Resolving]
